FAERS Safety Report 6554056-0 (Version None)
Quarter: 2010Q1

REPORT INFORMATION
  Report Type: 
  Country: None (occurrence: None)
  Receive Date: 20100122
  Receipt Date: 20100114
  Transmission Date: 20100710
  Serious: Yes (Death)
  Sender: FDA-Public Use
  Company Number: KADN20100007

PATIENT

DRUGS (1)
  1. MORPHINE [Suspect]
     Indication: DRUG USE FOR UNKNOWN INDICATION
     Dosage: VARIABLE ROUTES
     Dates: end: 20080101

REACTIONS (4)
  - COMPLETED SUICIDE [None]
  - DRUG ABUSE [None]
  - INTENTIONAL DRUG MISUSE [None]
  - POISONING [None]
